FAERS Safety Report 10081221 (Version 1)
Quarter: 2014Q2

REPORT INFORMATION
  Report Type: Spontaneous
  Country: US (occurrence: US)
  Receive Date: 20140416
  Receipt Date: 20140416
  Transmission Date: 20141212
  Serious: Yes (Death)
  Sender: FDA-Public Use
  Company Number: US-PFIZER INC-2014103157

PATIENT
  Age: 61 Year
  Sex: Female

DRUGS (5)
  1. MORPHINE SULFATE [Suspect]
     Dosage: UNK
  2. ALPRAZOLAM [Suspect]
     Dosage: UNK
  3. TRAMADOL HCL [Suspect]
     Dosage: UNK
  4. OXYCODONE HYDROCHLORIDE [Concomitant]
     Dosage: UNK
  5. CARISOPRODOL [Concomitant]
     Dosage: UNK

REACTIONS (2)
  - Accidental overdose [Fatal]
  - Death [Fatal]
